FAERS Safety Report 8763461 (Version 1)
Quarter: 2012Q4

REPORT INFORMATION
  Report Type: 
  Country: US (occurrence: US)
  Receive Date: 20120831
  Receipt Date: 20120831
  Transmission Date: 20130627
  Serious: Yes (Hospitalization)
  Sender: FDA-Public Use
  Company Number: US-BIOGENIDEC-2012BI032857

PATIENT
  Age: 62 Year
  Sex: Female

DRUGS (1)
  1. TYSABRI [Suspect]
     Indication: MULTIPLE SCLEROSIS
     Route: 042
     Dates: start: 20080812, end: 20120709

REACTIONS (5)
  - Fall [Recovered/Resolved]
  - Multiple sclerosis [Unknown]
  - Confusional state [Unknown]
  - Memory impairment [Unknown]
  - Incontinence [Unknown]
